FAERS Safety Report 7033488-0 (Version None)
Quarter: 2010Q4

REPORT INFORMATION
  Report Type: 
  Country: None (occurrence: None)
  Receive Date: 20101007
  Receipt Date: 20100930
  Transmission Date: 20110411
  Serious: Yes (Hospitalization, Other)
  Sender: FDA-Public Use
  Company Number: JP-BAYER-201014895BYL

PATIENT
  Age: 77 Year
  Sex: Female
  Weight: 47 kg

DRUGS (15)
  1. FOSRENOL [Suspect]
     Indication: HYPERPHOSPHATAEMIA
     Dosage: UNIT DOSE: 250 MG
     Route: 048
     Dates: start: 20090618
  2. ASPIRIN [Suspect]
     Indication: ANGINA PECTORIS
     Dosage: UNIT DOSE: 100 MG
     Route: 048
  3. CALCIUM CARBONATE [Concomitant]
     Indication: HYPERPHOSPHATAEMIA
     Route: 048
  4. CALCIUM CARBONATE [Concomitant]
     Route: 048
     Dates: start: 20090806
  5. RENAGEL [Concomitant]
     Indication: HYPERPHOSPHATAEMIA
     Route: 048
     Dates: start: 20090609
  6. RENAGEL [Concomitant]
     Route: 048
     Dates: start: 20090109, end: 20090609
  7. ONEALFA [Concomitant]
     Route: 048
     Dates: start: 20090421
  8. SELBEX [Concomitant]
     Indication: GASTRITIS
     Dosage: SINCE 4 WEEKS AGO
     Route: 048
  9. ARTIST [Concomitant]
     Indication: HYPERTENSION
     Route: 048
     Dates: start: 20090609
  10. NITOROL R [Concomitant]
     Indication: ANGINA PECTORIS
     Dosage: SINCE 4 WEEKS AGO
     Route: 048
  11. DIOVAN [Concomitant]
     Indication: HYPERTENSION
     Route: 048
     Dates: start: 20090421
  12. NORVASC [Concomitant]
     Indication: HYPERTENSION
     Route: 048
     Dates: start: 20090512
  13. HALCION [Concomitant]
     Indication: INSOMNIA
     Dosage: SINCE 4 WEEKS AGO
     Route: 048
  14. EPOGIN [Concomitant]
     Indication: ANAEMIA
     Route: 042
     Dates: start: 20090616
  15. NOVOLIN R [Concomitant]
     Indication: DIABETES MELLITUS
     Dosage: SINCE 4 WEEKS AGO
     Route: 058

REACTIONS (2)
  - GASTROINTESTINAL HAEMORRHAGE [None]
  - NAUSEA [None]
